FAERS Safety Report 7438321-0 (Version None)
Quarter: 2011Q2

REPORT INFORMATION
  Report Type: 
  Country: None (occurrence: None)
  Receive Date: 20110426
  Receipt Date: 20110421
  Transmission Date: 20111010
  Serious: Yes (Hospitalization)
  Sender: FDA-Public Use
  Company Number: US-SHIRE-SPV1-2011-00673

PATIENT
  Sex: Female
  Weight: 43.537 kg

DRUGS (1)
  1. PENTASA [Suspect]
     Indication: INFLAMMATORY BOWEL DISEASE
     Dosage: 1500 MG, 2X/DAY:BID
     Route: 048
     Dates: start: 20090101, end: 20110401

REACTIONS (4)
  - DEHYDRATION [None]
  - INFLAMMATORY BOWEL DISEASE [None]
  - CONDITION AGGRAVATED [None]
  - ANAEMIA [None]
